FAERS Safety Report 4919273-1 (Version None)
Quarter: 2006Q1

REPORT INFORMATION
  Report Type: 
  Country: None (occurrence: None)
  Receive Date: 20060222
  Receipt Date: 20060213
  Transmission Date: 20060701
  Serious: Yes (Hospitalization, Other)
  Sender: FDA-Public Use
  Company Number: GB-ABBOTT-06P-167-0324894-00

PATIENT
  Age: 74 Year
  Sex: Male

DRUGS (8)
  1. CLARITHROMYCIN [Suspect]
     Indication: LOWER RESPIRATORY TRACT INFECTION
     Route: 048
     Dates: start: 20060106, end: 20060113
  2. CLARITHROMYCIN [Suspect]
     Route: 048
     Dates: start: 20051214, end: 20051221
  3. WARFARIN SODIUM [Suspect]
     Indication: DRUG USE FOR UNKNOWN INDICATION
     Route: 048
     Dates: start: 19991001
  4. FUROSEMIDE [Concomitant]
     Indication: CARDIAC FAILURE CONGESTIVE
     Dosage: OM
     Route: 048
     Dates: start: 19991001
  5. ACETAMINOPHEN [Concomitant]
     Indication: ANALGESIC EFFECT
     Route: 048
     Dates: start: 19991001
  6. ATORVASTATIN CALCIUM [Concomitant]
     Indication: HYPERCHOLESTEROLAEMIA
     Dosage: ON
     Route: 048
     Dates: start: 19991001
  7. ACETYLSALICYLIC ACID SRT [Concomitant]
     Indication: ANTIPLATELET THERAPY
     Dosage: OM
     Route: 048
     Dates: start: 20030701, end: 20060118
  8. LISINOPRIL [Concomitant]
     Indication: CARDIAC FAILURE CONGESTIVE
     Dosage: OM
     Route: 048
     Dates: start: 20050601

REACTIONS (8)
  - CEREBELLAR HAEMORRHAGE [None]
  - COAGULOPATHY [None]
  - CONFUSIONAL STATE [None]
  - COORDINATION ABNORMAL [None]
  - FALL [None]
  - HEAD INJURY [None]
  - MIGRAINE [None]
  - VISUAL FIELD DEFECT [None]
